FAERS Safety Report 18255135 (Version 24)
Quarter: 2025Q3

REPORT INFORMATION
  Report Type: Report from Study
  Country: US (occurrence: US)
  Receive Date: 20200911
  Receipt Date: 20250918
  Transmission Date: 20251021
  Serious: Yes (Hospitalization, Other)
  Sender: TAKEDA
  Company Number: US-SHIRE-US202029455

PATIENT
  Age: 72 Year
  Sex: Female
  Weight: 87 kg

DRUGS (46)
  1. HUMAN IMMUNOGLOBULIN G [Suspect]
     Active Substance: HUMAN IMMUNOGLOBULIN G
     Indication: Immunodeficiency common variable
     Dosage: 10 GRAM, 1/WEEK
  2. HUMAN IMMUNOGLOBULIN G [Suspect]
     Active Substance: HUMAN IMMUNOGLOBULIN G
     Dosage: 10 GRAM, 1/WEEK
     Dates: start: 20160728
  3. DIPHENHYDRAMINE [Concomitant]
     Active Substance: DIPHENHYDRAMINE
  4. KLONOPIN [Concomitant]
     Active Substance: CLONAZEPAM
  5. FUROSEMIDE [Concomitant]
     Active Substance: FUROSEMIDE
  6. EPINEPHRINE [Concomitant]
     Active Substance: EPINEPHRINE
  7. METOPROLOL TARTRATE [Concomitant]
     Active Substance: METOPROLOL TARTRATE
  8. LIDOCAINE\PRILOCAINE [Concomitant]
     Active Substance: LIDOCAINE\PRILOCAINE
  9. LEVOTHYROXINE SODIUM [Concomitant]
     Active Substance: LEVOTHYROXINE SODIUM
  10. SINGULAIR [Concomitant]
     Active Substance: MONTELUKAST SODIUM
  11. ZOFRAN [Concomitant]
     Active Substance: ONDANSETRON HYDROCHLORIDE
  12. METFORMIN HYDROCHLORIDE [Concomitant]
     Active Substance: METFORMIN HYDROCHLORIDE
  13. ONDANSETRON [Concomitant]
     Active Substance: ONDANSETRON
  14. NEXIUM [Concomitant]
     Active Substance: ESOMEPRAZOLE MAGNESIUM
  15. SIMVASTATIN [Concomitant]
     Active Substance: SIMVASTATIN
  16. HYDROXYZINE HYDROCHLORIDE [Concomitant]
     Active Substance: HYDROXYZINE HYDROCHLORIDE
  17. LINZESS [Concomitant]
     Active Substance: LINACLOTIDE
  18. PROAIR HFA [Concomitant]
     Active Substance: ALBUTEROL SULFATE
  19. PROAIR RESPICLICK [Concomitant]
     Active Substance: ALBUTEROL SULFATE
  20. TRAZODONE HCL [Concomitant]
     Active Substance: TRAZODONE HYDROCHLORIDE
  21. DIFLUCAN [Concomitant]
     Active Substance: FLUCONAZOLE
  22. GINGER [Concomitant]
     Active Substance: GINGER
  23. VIIBRYD [Concomitant]
     Active Substance: VILAZODONE HYDROCHLORIDE
  24. SYMBICORT [Concomitant]
     Active Substance: BUDESONIDE\FORMOTEROL FUMARATE DIHYDRATE
  25. IBUPROFEN [Concomitant]
     Active Substance: IBUPROFEN
  26. AZELASTINE [Concomitant]
     Active Substance: AZELASTINE
  27. CYCLOBENZAPRINE [Concomitant]
     Active Substance: CYCLOBENZAPRINE
  28. BENTYL [Concomitant]
     Active Substance: DICYCLOMINE HYDROCHLORIDE
  29. ABILIFY [Concomitant]
     Active Substance: ARIPIPRAZOLE
  30. METHIMAZOLE [Concomitant]
     Active Substance: METHIMAZOLE
  31. ULTRAM [Concomitant]
     Active Substance: TRAMADOL HYDROCHLORIDE
  32. STOOL SOFTENER (DOCUSATE) [Concomitant]
     Active Substance: DOCUSATE
  33. ZANTAC [Concomitant]
     Active Substance: RANITIDINE HYDROCHLORIDE
  34. LIDOCAINE [Concomitant]
     Active Substance: LIDOCAINE
  35. LOSARTAN POTASSIUM [Concomitant]
     Active Substance: LOSARTAN POTASSIUM
  36. GABAPENTIN [Concomitant]
     Active Substance: GABAPENTIN
  37. PROMETHAZINE [Concomitant]
     Active Substance: PROMETHAZINE HYDROCHLORIDE
  38. NEXLETOL [Concomitant]
     Active Substance: BEMPEDOIC ACID
  39. LEXAPRO [Concomitant]
     Active Substance: ESCITALOPRAM OXALATE
  40. TRULANCE [Concomitant]
     Active Substance: PLECANATIDE
  41. MIRTAZAPINE [Concomitant]
     Active Substance: MIRTAZAPINE
  42. PROMETHAZINE HYDROCHLORIDE [Concomitant]
     Active Substance: PROMETHAZINE HYDROCHLORIDE
  43. DIPHENHYDRAMINE HYDROCHLORIDE [Concomitant]
     Active Substance: DIPHENHYDRAMINE HYDROCHLORIDE
  44. VITAMIN B [Concomitant]
     Active Substance: VITAMIN B
  45. VENTOLIN [Concomitant]
     Active Substance: ALBUTEROL SULFATE
  46. LUBIPROSTONE [Concomitant]
     Active Substance: LUBIPROSTONE

REACTIONS (28)
  - Clostridium difficile infection [Recovered/Resolved]
  - Gastric polyps [Unknown]
  - Humerus fracture [Unknown]
  - Gastritis [Unknown]
  - Haemorrhage [Unknown]
  - Haemoglobin decreased [Unknown]
  - Breast cancer [Unknown]
  - Colitis [Recovering/Resolving]
  - Impaired gastric emptying [Unknown]
  - Diverticulitis [Unknown]
  - Product dose omission in error [Unknown]
  - Inappropriate schedule of product administration [Unknown]
  - Upper limb fracture [Unknown]
  - Gastrointestinal infection [Unknown]
  - Fall [Unknown]
  - Sinusitis [Unknown]
  - Malaise [Unknown]
  - Infusion site urticaria [Unknown]
  - Arthralgia [Unknown]
  - Back pain [Unknown]
  - Infusion site erythema [Unknown]
  - Asthenia [Not Recovered/Not Resolved]
  - Pain [Unknown]
  - Infusion site pruritus [Unknown]
  - Nausea [Unknown]
  - Vein rupture [Unknown]
  - Post procedural complication [Unknown]
  - Hordeolum [Unknown]

NARRATIVE: CASE EVENT DATE: 20230828
